FAERS Safety Report 7225097-5 (Version None)
Quarter: 2011Q1

REPORT INFORMATION
  Report Type: 
  Country: None (occurrence: None)
  Receive Date: 20110103
  Receipt Date: 20101221
  Transmission Date: 20110831
  Serious: No
  Sender: FDA-Public Use
  Company Number: GB-ACCORD-007445

PATIENT
  Sex: Male

DRUGS (2)
  1. CLOPIXOL(CLOPIXOL) [Suspect]
     Indication: SCHIZOPHRENIA
     Dosage: 500.00-MG-1.00PE / INTRAMUSCULAR R-1.0WEEKS
     Route: 030
  2. SIMVASTATIN [Suspect]
     Dates: end: 20101201

REACTIONS (2)
  - MALAISE [None]
  - MYOSITIS [None]
